FAERS Safety Report 13390105 (Version 2)
Quarter: 2017Q2

REPORT INFORMATION
  Report Type: Spontaneous
  Country: US (occurrence: US)
  Receive Date: 20170331
  Receipt Date: 20170511
  Transmission Date: 20170830
  Serious: No
  Sender: FDA-Public Use
  Company Number: PHEH2017US009482

PATIENT
  Sex: Female

DRUGS (1)
  1. COSENTYX [Suspect]
     Active Substance: SECUKINUMAB
     Indication: PSORIASIS
     Dosage: 300 MG/ML, UNK
     Route: 058

REACTIONS (5)
  - Swelling [Recovering/Resolving]
  - Skin sensitisation [Recovering/Resolving]
  - Hypersensitivity [Unknown]
  - Sinusitis [Unknown]
  - Psoriasis [Recovering/Resolving]
